FAERS Safety Report 15434675 (Version 2)
Quarter: 2018Q4

REPORT INFORMATION
  Report Type: Report from Study
  Country: CA (occurrence: CA)
  Receive Date: 20180927
  Receipt Date: 20181003
  Transmission Date: 20190204
  Serious: Yes (Hospitalization)
  Sender: FDA-Public Use
  Company Number: CA-JNJFOC-20180923702

PATIENT
  Age: 46 Year
  Sex: Male

DRUGS (1)
  1. STELARA [Suspect]
     Active Substance: USTEKINUMAB
     Indication: CROHN^S DISEASE
     Dosage: STRENGTH = 90 MG
     Route: 058
     Dates: start: 20170228

REACTIONS (4)
  - Headache [Unknown]
  - Bacterial infection [Recovering/Resolving]
  - Viral infection [Recovering/Resolving]
  - Colonoscopy [Unknown]

NARRATIVE: CASE EVENT DATE: 2018
